FAERS Safety Report 7694465-X (Version None)
Quarter: 2011Q3

REPORT INFORMATION
  Report Type: 
  Country: None (occurrence: None)
  Receive Date: 20110819
  Receipt Date: 20110810
  Transmission Date: 20111222
  Serious: Yes (Hospitalization)
  Sender: FDA-Public Use
  Company Number: PHHY2011JP72580

PATIENT

DRUGS (1)
  1. EXELON [Suspect]
     Indication: DEMENTIA ALZHEIMER'S TYPE
     Dosage: UNK UKN, UNK
     Route: 062
     Dates: start: 20110729, end: 20110806

REACTIONS (3)
  - HEAT ILLNESS [None]
  - BLOOD UREA INCREASED [None]
  - BLOOD CREATININE INCREASED [None]
